FAERS Safety Report 5695829-6 (Version None)
Quarter: 2008Q2

REPORT INFORMATION
  Report Type: 
  Country: None (occurrence: None)
  Receive Date: 20080407
  Receipt Date: 20080327
  Transmission Date: 20081010
  Serious: Yes (Other)
  Sender: FDA-Public Use
  Company Number: US-JNJFOC-20080400405

PATIENT
  Sex: Male
  Weight: 90.72 kg

DRUGS (3)
  1. FENTANYL TRANSDERMAL SYSTEM [Suspect]
     Indication: BACK PAIN
     Route: 062
  2. NEURONTIN [Concomitant]
     Indication: NEUROPATHY PERIPHERAL
     Dosage: 2 IN THE MORNING AND 2 IN THE EVENING
     Route: 048
  3. ALLOPURINOL [Concomitant]
     Indication: GOUT
     Route: 048

REACTIONS (3)
  - BLOOD POTASSIUM INCREASED [None]
  - PAIN [None]
  - RENAL IMPAIRMENT [None]
